FAERS Safety Report 10017408 (Version 1)
Quarter: 2014Q1

REPORT INFORMATION
  Report Type: Spontaneous
  Country: US (occurrence: None)
  Receive Date: 20140313
  Receipt Date: 20140313
  Transmission Date: 20141002
  Serious: Yes (Disabling)
  Sender: FDA-Public Use
  Company Number: None

PATIENT
  Age: 73 Year
  Sex: Female
  Weight: 95.26 kg

DRUGS (5)
  1. LISINOPRIL [Suspect]
     Indication: HYPERTENSION
     Dosage: AFTE TAKING 108 PILLS
     Route: 048
     Dates: start: 20130913
  2. ZESTRIL [Suspect]
  3. ASPIRIN [Concomitant]
  4. MULTIVITAMINS [Concomitant]
  5. OMEGA 3 [Concomitant]

REACTIONS (4)
  - Arthralgia [None]
  - Musculoskeletal stiffness [None]
  - Gait disturbance [None]
  - Balance disorder [None]
